FAERS Safety Report 6527847-X (Version None)
Quarter: 2009Q4

REPORT INFORMATION
  Report Type: 
  Country: None (occurrence: None)
  Receive Date: 20091231
  Receipt Date: 20091217
  Transmission Date: 20100525
  Serious: Yes (Congenital Anomaly, Other)
  Sender: FDA-Public Use
  Company Number: VAL_00345_2009

PATIENT
  Age: 7 Year
  Sex: Male
  Weight: 16.5 kg

DRUGS (2)
  1. CARBAMAZEPINE [Suspect]
     Indication: MATERNAL DRUGS AFFECTING FOETUS
     Dosage: (200 MG BID TRANSPLACENTAL)
     Route: 064
  2. PHENOBARBITAL TAB [Suspect]
     Indication: MATERNAL DRUGS AFFECTING FOETUS
     Dosage: (100 MG BID TRANSPLACENTAL)

REACTIONS (8)
  - CONGENITAL HAND MALFORMATION [None]
  - DYSMORPHISM [None]
  - GROWTH RETARDATION [None]
  - HYPERTELORISM OF ORBIT [None]
  - HYPOSPADIAS [None]
  - LOW SET EARS [None]
  - MATERNAL DRUGS AFFECTING FOETUS [None]
  - PROMINENT EPICANTHAL FOLDS [None]
